FAERS Safety Report 5711977-6 (Version None)
Quarter: 2008Q2

REPORT INFORMATION
  Report Type: 
  Country: None (occurrence: None)
  Receive Date: 20080416
  Receipt Date: 20080401
  Transmission Date: 20081010
  Serious: Yes (Other)
  Sender: FDA-Public Use
  Company Number: UKP08000066

PATIENT
  Sex: Female

DRUGS (1)
  1. DANTRIUM [Suspect]
     Dosage: 250 MG, DAILY, ORAL
     Route: 048

REACTIONS (1)
  - GASTROINTESTINAL DISORDER [None]
